FAERS Safety Report 9758159 (Version 1)
Quarter: 2013Q4

REPORT INFORMATION
  Report Type: Spontaneous
  Country: US (occurrence: US)
  Receive Date: 20131216
  Receipt Date: 20131216
  Transmission Date: 20140711
  Serious: Yes (Hospitalization)
  Sender: FDA-Public Use
  Company Number: US-JNJFOC-20131208394

PATIENT
  Age: 61 Year
  Sex: Male

DRUGS (6)
  1. TRAMADOL HYDROCHLORIDE [Suspect]
     Indication: PRODUCT USED FOR UNKNOWN INDICATION
     Route: 065
     Dates: end: 201311
  2. OXYCONTIN [Suspect]
     Indication: PRODUCT USED FOR UNKNOWN INDICATION
     Route: 065
     Dates: end: 201311
  3. LETAIRIS [Suspect]
     Indication: PULMONARY HYPERTENSION
     Route: 065
     Dates: start: 20090303
  4. ACETYLCARNITINE HYDROCHLORIDE [Concomitant]
     Indication: PRODUCT USED FOR UNKNOWN INDICATION
     Route: 065
  5. COUMADIN [Concomitant]
     Indication: PRODUCT USED FOR UNKNOWN INDICATION
     Route: 065
  6. LYRICA [Concomitant]
     Indication: PRODUCT USED FOR UNKNOWN INDICATION
     Route: 065

REACTIONS (5)
  - PCO2 increased [Unknown]
  - Respiratory failure [Unknown]
  - Adverse event [Not Recovered/Not Resolved]
  - Chronic obstructive pulmonary disease [Unknown]
  - Somnolence [Not Recovered/Not Resolved]
